APPROVED DRUG PRODUCT: PAMIDRONATE DISODIUM
Active Ingredient: PAMIDRONATE DISODIUM
Strength: 90MG/VIAL
Dosage Form/Route: INJECTABLE;INJECTION
Application: A078300 | Product #002
Applicant: MN PHARMACEUTICALS
Approved: Mar 10, 2009 | RLD: No | RS: No | Type: DISCN